FAERS Safety Report 7156590-1 (Version None)
Quarter: 2010Q4

REPORT INFORMATION
  Report Type: 
  Country: None (occurrence: None)
  Receive Date: 20101214
  Receipt Date: 20100216
  Transmission Date: 20110411
  Serious: Yes (Other)
  Sender: FDA-Public Use
  Company Number: US-ASTRAZENECA-2009SE24607

PATIENT
  Sex: Female

DRUGS (7)
  1. CRESTOR [Suspect]
     Route: 048
     Dates: start: 20080101
  2. AMLODIPINE [Concomitant]
  3. ENALAPRIL [Concomitant]
  4. METFORMIN [Concomitant]
  5. ASPIRIN [Concomitant]
  6. PLAVIX [Concomitant]
  7. WELCHOL [Concomitant]
     Dosage: TWO TABLETS DAILY

REACTIONS (2)
  - HYPERTENSION [None]
  - RHABDOMYOLYSIS [None]
